FAERS Safety Report 16409519 (Version 4)
Quarter: 2019Q2

REPORT INFORMATION
  Report Type: Spontaneous
  Country: IT (occurrence: IT)
  Receive Date: 20190610
  Receipt Date: 20190624
  Transmission Date: 20190711
  Serious: Yes (Other)
  Sender: FDA-Public Use
  Company Number: IT-ACCORD-131640

PATIENT
  Age: 66 Year
  Sex: Male
  Weight: 85 kg

DRUGS (3)
  1. FLUOROURACIL. [Suspect]
     Active Substance: FLUOROURACIL
     Indication: OESOPHAGEAL ADENOCARCINOMA STAGE IV
     Dosage: ALSO RECEIVED 800 MG INTRAVENOUS BOLUS. THERAPY END DATE- 15-APR-2019
     Route: 042
     Dates: start: 20190318
  2. OXALIPLATIN. [Suspect]
     Active Substance: OXALIPLATIN
     Indication: OESOPHAGEAL ADENOCARCINOMA STAGE IV
     Dosage: THERAPY END DATE- 15-APR-2019
     Route: 042
     Dates: start: 20190318
  3. LEVOLEUCOVORIN. [Concomitant]
     Active Substance: LEVOLEUCOVORIN
     Indication: OESOPHAGEAL ADENOCARCINOMA STAGE IV
     Route: 042
     Dates: start: 20190318, end: 20190415

REACTIONS (4)
  - Oral dysaesthesia [Recovering/Resolving]
  - Hypertransaminasaemia [Recovering/Resolving]
  - Off label use [Unknown]
  - Nausea [Recovering/Resolving]

NARRATIVE: CASE EVENT DATE: 20190319
